FAERS Safety Report 16499595 (Version 2)
Quarter: 2019Q4

REPORT INFORMATION
  Report Type: Report from Study
  Country: US (occurrence: US)
  Receive Date: 20190701
  Receipt Date: 20191019
  Transmission Date: 20200122
  Serious: No
  Sender: FDA-Public Use
  Company Number: PHEH2019US026088

PATIENT
  Sex: Female

DRUGS (1)
  1. GLATOPA [Suspect]
     Active Substance: GLATIRAMER ACETATE
     Indication: RELAPSING MULTIPLE SCLEROSIS
     Dosage: 40 MG, QW3
     Route: 058
     Dates: start: 20190214, end: 20190519

REACTIONS (3)
  - Administration site extravasation [Unknown]
  - Device malfunction [Unknown]
  - Underdose [Unknown]
